FAERS Safety Report 19686290 (Version 1)
Quarter: 2021Q3

REPORT INFORMATION
  Report Type: Spontaneous
  Country: IL (occurrence: IL)
  Receive Date: 20210811
  Receipt Date: 20210811
  Transmission Date: 20211014
  Serious: Yes (Other)
  Sender: FDA-Public Use
  Company Number: IL-KYOWAKIRIN-2021BKK013494

PATIENT

DRUGS (1)
  1. CRYSVITA [Suspect]
     Active Substance: BUROSUMAB-TWZA
     Indication: PRODUCT USED FOR UNKNOWN INDICATION
     Dosage: 30 MG PER MONTH
     Route: 065
     Dates: start: 2020

REACTIONS (2)
  - Condition aggravated [Unknown]
  - Nephrocalcinosis [Unknown]
